FAERS Safety Report 14739379 (Version 2)
Quarter: 2018Q2

REPORT INFORMATION
  Report Type: Spontaneous
  Country: FR (occurrence: FR)
  Receive Date: 20180410
  Receipt Date: 20180502
  Transmission Date: 20180711
  Serious: Yes (Hospitalization)
  Sender: FDA-Public Use
  Company Number: FR-ROCHE-2103447

PATIENT
  Age: 14 Year
  Sex: Female
  Weight: 42 kg

DRUGS (5)
  1. XOLAIR [Suspect]
     Active Substance: OMALIZUMAB
     Indication: ASTHMA
     Dosage: 450 MG, BIW (EVERY 2 WEEKS)
     Route: 058
     Dates: start: 20180131
  2. SINGULAIR [Concomitant]
     Active Substance: MONTELUKAST SODIUM
     Indication: PRODUCT USED FOR UNKNOWN INDICATION
     Dosage: 10 MG, UNK
     Route: 048
  3. SERETIDE [Concomitant]
     Active Substance: FLUTICASONE PROPIONATE\SALMETEROL XINAFOATE
     Indication: PRODUCT USED FOR UNKNOWN INDICATION
     Dosage: 250 UG, UNK
     Route: 055
  4. XOLAIR [Suspect]
     Active Substance: OMALIZUMAB
     Dosage: 300 MG, BIW (EVERY 2 WEEKS)
     Route: 058
  5. AERIUS [Concomitant]
     Active Substance: DESLORATADINE
     Indication: PRODUCT USED FOR UNKNOWN INDICATION
     Dosage: 5 MG, UNK
     Route: 048

REACTIONS (5)
  - Pyrexia [Recovered/Resolved]
  - Aphthous ulcer [Unknown]
  - Herpangina [Recovered/Resolved]
  - Lymphadenopathy [Recovered/Resolved]
  - Tonsillitis [Unknown]

NARRATIVE: CASE EVENT DATE: 20180304
